FAERS Safety Report 4609133-8 (Version None)
Quarter: 2005Q1

REPORT INFORMATION
  Report Type: 
  Country: None (occurrence: None)
  Receive Date: 20050311
  Receipt Date: 20050301
  Transmission Date: 20050727
  Serious: Yes (Death, Hospitalization)
  Sender: FDA-Public Use
  Company Number: 2004-11-0496

PATIENT
  Age: 54 Year
  Sex: Male

DRUGS (2)
  1. INTRON A [Suspect]
     Indication: HEPATITIS C
     Dates: start: 20040701
  2. REBETOL [Suspect]
     Indication: HEPATITIS C
     Dates: start: 20040701

REACTIONS (3)
  - HEPATIC FAILURE [None]
  - PNEUMONIA [None]
  - SEPSIS [None]
